FAERS Safety Report 18276795 (Version 2)
Quarter: 2020Q4

REPORT INFORMATION
  Report Type: Spontaneous
  Country: US (occurrence: US)
  Receive Date: 20200917
  Receipt Date: 20201001
  Transmission Date: 20210113
  Serious: No
  Sender: FDA-Public Use
  Company Number: US-HORIZON-TEP-1953-2020

PATIENT
  Age: 20 Year
  Sex: Female

DRUGS (3)
  1. METHIMAZOLE. [Concomitant]
     Active Substance: METHIMAZOLE
  2. VITAMIN D2 [Concomitant]
     Active Substance: ERGOCALCIFEROL
  3. TEPEZZA [Suspect]
     Active Substance: TEPROTUMUMAB-TRBW
     Indication: ENDOCRINE OPHTHALMOPATHY
     Dosage: 1300MG (27.3ML) EVERY 3 WEEKS
     Route: 042
     Dates: start: 20200810

REACTIONS (1)
  - Weight increased [Recovered/Resolved]
